FAERS Safety Report 6821509-7 (Version None)
Quarter: 2010Q3

REPORT INFORMATION
  Report Type: 
  Country: None (occurrence: None)
  Receive Date: 20100707
  Receipt Date: 20081222
  Transmission Date: 20110219
  Serious: No
  Sender: FDA-Public Use
  Company Number: US-PFIZER INC-2008159504

PATIENT
  Sex: Female
  Weight: 60.781 kg

DRUGS (4)
  1. ZOLOFT [Suspect]
     Indication: ANXIETY
     Dosage: 25 MG, 1X/DAY
     Dates: start: 20081124, end: 20081219
  2. ZOLOFT [Suspect]
     Indication: DEPRESSION
  3. LIPITOR [Concomitant]
     Dosage: UNK
  4. CONTRACEPTIVE, UNSPECIFIED [Concomitant]
     Dosage: UNK

REACTIONS (9)
  - DECREASED APPETITE [None]
  - DIARRHOEA [None]
  - DRY MOUTH [None]
  - DYSPEPSIA [None]
  - FREQUENT BOWEL MOVEMENTS [None]
  - INCORRECT DOSE ADMINISTERED [None]
  - RESPIRATORY TRACT INFECTION [None]
  - UNEVALUABLE EVENT [None]
  - WEIGHT DECREASED [None]
